FAERS Safety Report 5088210-4 (Version None)
Quarter: 2006Q3

REPORT INFORMATION
  Report Type: 
  Country: None (occurrence: None)
  Receive Date: 20060727
  Receipt Date: 20060607
  Transmission Date: 20061208
  Serious: Yes (Other)
  Sender: FDA-Public Use
  Company Number: 2006074801

PATIENT
  Age: 65 Year
  Sex: Female
  Weight: 59.8748 kg

DRUGS (5)
  1. LYRICA [Suspect]
     Indication: NERVE INJURY
     Dosage: 75 MG (75 MG, 1 IN 1 D)
     Dates: start: 20060511, end: 20060518
  2. REQUIP [Concomitant]
  3. CELEBREX [Concomitant]
  4. LEVOTHYROXINE SODIUM [Concomitant]
  5. VITAMINS (VITAMINS) [Concomitant]

REACTIONS (5)
  - ACTIVITIES OF DAILY LIVING IMPAIRED [None]
  - BALANCE DISORDER [None]
  - BLINDNESS [None]
  - DIZZINESS [None]
  - VISION BLURRED [None]
